FAERS Safety Report 13898704 (Version 6)
Quarter: 2017Q4

REPORT INFORMATION
  Report Type: Report from Study
  Country: US (occurrence: BR)
  Receive Date: 20170823
  Receipt Date: 20171211
  Transmission Date: 20180320
  Serious: Yes (Other)
  Sender: FDA-Public Use
  Company Number: US-SUNOVION-2017SUN003691

PATIENT
  Sex: Female
  Weight: 60.8 kg

DRUGS (2)
  1. SERTRALINE [Concomitant]
     Active Substance: SERTRALINE HYDROCHLORIDE
  2. INDACATEROL AND GLYCOPYRROLATE [Suspect]
     Active Substance: GLYCOPYRROLATE\INDACATEROL MALEATE
     Indication: EMPHYSEMA
     Dosage: 1 DF 110/50 UG, QD
     Route: 055
     Dates: start: 20170509

REACTIONS (13)
  - Gait disturbance [Unknown]
  - Oropharyngeal pain [Unknown]
  - Dyspnoea [Recovering/Resolving]
  - Secretion discharge [Recovering/Resolving]
  - Sinusitis [Unknown]
  - Malaise [Unknown]
  - Feeling of despair [Unknown]
  - Hyperphagia [Unknown]
  - Weight increased [Not Recovered/Not Resolved]
  - Vomiting [Unknown]
  - Productive cough [Recovering/Resolving]
  - Cough [Unknown]
  - Choking [Unknown]
